FAERS Safety Report 10994643 (Version 1)
Quarter: 2015Q2

REPORT INFORMATION
  Report Type: Spontaneous
  Country: US (occurrence: None)
  Receive Date: 20150406
  Receipt Date: 20150406
  Transmission Date: 20150821
  Serious: Yes (Disabling)
  Sender: FDA-Public Use
  Company Number: None

PATIENT
  Age: 70 Year
  Sex: Male
  Weight: 104.33 kg

DRUGS (1)
  1. CELECOXIB. [Suspect]
     Active Substance: CELECOXIB
     Indication: ARTHRITIS
     Dosage: TAKEN BY MOUTH
     Route: 048
     Dates: start: 20150101, end: 20150404

REACTIONS (2)
  - Product substitution issue [None]
  - Pain [None]

NARRATIVE: CASE EVENT DATE: 20150404
